FAERS Safety Report 11273007 (Version 1)
Quarter: 2015Q2

REPORT INFORMATION
  Report Type: Spontaneous
  Country: US (occurrence: None)
  Receive Date: 20150625
  Receipt Date: 20150625
  Transmission Date: 20150821
  Serious: No
  Sender: FDA-Public Use
  Company Number: A-NJ2015-114712

PATIENT
  Age: 68 Year
  Sex: Female

DRUGS (11)
  1. XOPENEX HFA (LEVOSALBUTAMOL TARTRATE) [Concomitant]
  2. MTV (VITAMINS NOS) [Concomitant]
  3. CLARITIN [Concomitant]
     Active Substance: LORATADINE
  4. DIGOXIN. [Concomitant]
     Active Substance: DIGOXIN
  5. REMODULIN [Concomitant]
     Active Substance: TREPROSTINIL
  6. ALPRAZOLAM. [Concomitant]
     Active Substance: ALPRAZOLAM
  7. SYMBICORT [Concomitant]
     Active Substance: BUDESONIDE\FORMOTEROL FUMARATE DIHYDRATE
  8. OPSUMIT [Suspect]
     Active Substance: MACITENTAN
     Indication: PULMONARY ARTERIAL HYPERTENSION
     Route: 048
     Dates: start: 20140712
  9. WARFARIN [Concomitant]
     Active Substance: WARFARIN
  10. BUMETANIDE. [Concomitant]
     Active Substance: BUMETANIDE
  11. KLOR-CON (POTASSIUM CHLORIDE) [Concomitant]

REACTIONS (6)
  - Sinus congestion [None]
  - Bronchitis [None]
  - Pharyngitis [None]
  - Upper-airway cough syndrome [None]
  - Nasal congestion [None]
  - Haemoptysis [None]

NARRATIVE: CASE EVENT DATE: 20150306
